FAERS Safety Report 5308486-5 (Version None)
Quarter: 2007Q2

REPORT INFORMATION
  Report Type: 
  Country: None (occurrence: None)
  Receive Date: 20070424
  Receipt Date: 20070424
  Transmission Date: 20071010
  Serious: Yes (Life-Threatening, Hospitalization, Other)
  Sender: FDA-Public Use
  Company Number: None

PATIENT
  Age: 50 Year
  Sex: Female
  Weight: 74.8435 kg

DRUGS (2)
  1. ZELNORM [Suspect]
     Indication: ABDOMINAL DISTENSION
     Dosage: 1 TABLET TWICE A DAY PO
     Route: 048
  2. ZELNORM [Suspect]
     Indication: CONSTIPATION
     Dosage: 1 TABLET TWICE A DAY PO
     Route: 048

REACTIONS (3)
  - ANGINA PECTORIS [None]
  - RECTAL HAEMORRHAGE [None]
  - STRESS [None]
